FAERS Safety Report 9490648 (Version 2)
Quarter: 2013Q4

REPORT INFORMATION
  Report Type: Report from Study
  Country: JP (occurrence: JP)
  Receive Date: 20130830
  Receipt Date: 20131105
  Transmission Date: 20140711
  Serious: Yes (Hospitalization)
  Sender: FDA-Public Use
  Company Number: PHHO2013JP011089

PATIENT
  Age: 62 Year
  Sex: Female
  Weight: 67 kg

DRUGS (19)
  1. ALISKIREN [Suspect]
     Indication: CARDIAC FAILURE
     Dosage: UNK
     Route: 048
     Dates: start: 20100218, end: 20130823
  2. ARTIST [Suspect]
     Indication: CARDIAC FAILURE CHRONIC
     Dosage: 5.0 MG, UNK
     Route: 048
  3. ARTIST [Suspect]
     Dosage: 10 MG, UNK
     Route: 048
  4. CRESTOR [Concomitant]
     Indication: HYPERLIPIDAEMIA
     Dosage: 100 MG, UNK
     Route: 048
  5. CRESTOR [Concomitant]
     Dosage: 2.5 MG, UNK
     Route: 048
  6. ASPARA POTASSIUM [Concomitant]
     Indication: CARDIAC FAILURE CHRONIC
     Dosage: 900 MG, UNK
     Route: 048
  7. MAGNESIUM OXIDE [Concomitant]
     Indication: CONSTIPATION
     Dosage: 1.5 G, UNK
     Route: 048
  8. ALFAROL [Concomitant]
     Indication: OSTEOPOROSIS PROPHYLAXIS
     Dosage: 0.5 UG, UNK
     Route: 048
  9. ALFAROL [Concomitant]
     Dosage: 60 MG, UNK
     Route: 048
  10. WARFARIN [Concomitant]
     Indication: CARDIAC FAILURE CHRONIC
     Dosage: 1.5 MG, UNK
     Route: 048
  11. PREDNISOLONE [Concomitant]
     Indication: CARDIAC SARCOIDOSIS
     Dosage: 5 MG, UNK
     Route: 048
  12. PREDNISOLONE [Concomitant]
     Indication: CARDIAC FAILURE CHRONIC
     Dosage: 7.5 MG, UNK
     Route: 048
  13. LUPRAC [Concomitant]
     Indication: CARDIAC FAILURE CHRONIC
     Dosage: 8 MG, UNK
     Route: 048
  14. ANCARON [Concomitant]
     Indication: CARDIAC FAILURE CHRONIC
     Dosage: 100 MG, UNK
     Route: 048
  15. PARIET [Concomitant]
     Indication: PROPHYLAXIS AGAINST GASTROINTESTINAL ULCER
     Dosage: 10 MG, UNK
     Route: 048
  16. MERISLON [Concomitant]
     Indication: PROPHYLAXIS
     Dosage: 18 MG, UNK
     Route: 048
  17. BONOTEO [Concomitant]
     Indication: OSTEOPOROSIS PROPHYLAXIS
     Dosage: 50 MG, UNK
     Route: 048
  18. TEPRENONE [Concomitant]
     Indication: PROPHYLAXIS AGAINST GASTROINTESTINAL ULCER
     Dosage: UNK
     Route: 048
  19. OXYGEN THERAPY [Suspect]

REACTIONS (1)
  - Cardiac failure [Recovered/Resolved]
